FAERS Safety Report 10375113 (Version 1)
Quarter: 2014Q3

REPORT INFORMATION
  Report Type: Spontaneous
  Country: FR (occurrence: FR)
  Receive Date: 20140811
  Receipt Date: 20140811
  Transmission Date: 20150326
  Serious: Yes (Life-Threatening, Other)
  Sender: FDA-Public Use
  Company Number: FR-PFIZER INC-2014220567

PATIENT
  Age: 59 Year
  Sex: Male

DRUGS (4)
  1. PENTASA [Suspect]
     Active Substance: MESALAMINE
     Dosage: 2000 MG, 1X/DAY
     Route: 048
  2. LERCAN [Suspect]
     Active Substance: LERCANIDIPINE
     Dosage: UNK
     Route: 065
  3. INIPOMP [Suspect]
     Active Substance: PANTOPRAZOLE SODIUM
     Dosage: UNK
     Route: 065
  4. ZYLORIC [Suspect]
     Active Substance: ALLOPURINOL
     Dosage: UNK
     Route: 065

REACTIONS (2)
  - Pancreatitis acute [Unknown]
  - Duodenal perforation [Unknown]

NARRATIVE: CASE EVENT DATE: 20140602
